FAERS Safety Report 7532394-2 (Version None)
Quarter: 2011Q2

REPORT INFORMATION
  Report Type: 
  Country: None (occurrence: None)
  Receive Date: 20110607
  Receipt Date: 20110607
  Transmission Date: 20111010
  Serious: No
  Sender: FDA-Public Use
  Company Number: None

PATIENT
  Age: 40 Year
  Sex: Male
  Weight: 105.6881 kg

DRUGS (1)
  1. FENOFIBRATE [Suspect]
     Dosage: 160 MG DAILY PO
     Route: 048
     Dates: start: 20090101, end: 20110223

REACTIONS (3)
  - GASTROINTESTINAL HAEMORRHAGE [None]
  - LIVER FUNCTION TEST ABNORMAL [None]
  - EPISTAXIS [None]
